FAERS Safety Report 15465705 (Version 3)
Quarter: 2019Q2

REPORT INFORMATION
  Report Type: Report from Study
  Country: NI (occurrence: NI)
  Receive Date: 20181004
  Receipt Date: 20190605
  Transmission Date: 20190711
  Serious: Yes (Death, Hospitalization, Other)
  Sender: FDA-Public Use
  Company Number: NI-BAYER-2018-182804

PATIENT
  Age: 64 Year
  Sex: Female

DRUGS (3)
  1. NEXAVAR [Suspect]
     Active Substance: SORAFENIB
     Indication: HEPATOCELLULAR CARCINOMA
     Dosage: 400 MG
     Route: 048
     Dates: start: 20170208
  2. IMURAN [Concomitant]
     Active Substance: AZATHIOPRINE
  3. NEBILET [Concomitant]
     Active Substance: NEBIVOLOL

REACTIONS (6)
  - Respiratory failure [None]
  - Pain [None]
  - Off label use [None]
  - Respiratory arrest [Fatal]
  - Liver function test increased [None]
  - Pneumonia [None]

NARRATIVE: CASE EVENT DATE: 20180810
